FAERS Safety Report 5096942-7 (Version None)
Quarter: 2006Q3

REPORT INFORMATION
  Report Type: 
  Country: None (occurrence: None)
  Receive Date: 20060906
  Receipt Date: 20060829
  Transmission Date: 20061208
  Serious: Yes (Hospitalization)
  Sender: FDA-Public Use
  Company Number: JP-JNJFOC-20050804873

PATIENT
  Sex: Male
  Weight: 60 kg

DRUGS (14)
  1. REMICADE [Suspect]
     Route: 042
  2. REMICADE [Suspect]
     Route: 042
  3. REMICADE [Suspect]
     Route: 042
  4. REMICADE [Suspect]
     Route: 042
  5. REMICADE [Suspect]
     Route: 042
  6. REMICADE [Suspect]
     Indication: CROHN'S DISEASE
     Route: 042
  7. PENTASA [Concomitant]
     Indication: CROHN'S DISEASE
     Route: 048
  8. FLAGYL [Concomitant]
     Indication: CROHN'S DISEASE
     Route: 048
  9. IMURAN [Concomitant]
     Indication: CROHN'S DISEASE
     Route: 048
  10. ISCOTIN [Concomitant]
     Indication: ANTIBIOTIC PROPHYLAXIS
     Route: 048
  11. ALLOPURINOL [Concomitant]
     Indication: HYPOURICAEMIA
     Route: 048
  12. ATELEC [Concomitant]
     Indication: RENAL HYPERTENSION
     Route: 048
  13. CARDENALIN [Concomitant]
     Indication: RENAL HYPERTENSION
     Route: 048
  14. DIPHENHYDRAMINE [Concomitant]
     Indication: PREMEDICATION

REACTIONS (3)
  - CROHN'S DISEASE [None]
  - INFUSION RELATED REACTION [None]
  - METABOLIC ACIDOSIS [None]
